FAERS Safety Report 7519646-7 (Version None)
Quarter: 2011Q2

REPORT INFORMATION
  Report Type: 
  Country: None (occurrence: None)
  Receive Date: 20110602
  Receipt Date: 20110525
  Transmission Date: 20111010
  Serious: Yes (Other)
  Sender: FDA-Public Use
  Company Number: B0699093A

PATIENT
  Sex: Female

DRUGS (1)
  1. PROMACTA [Suspect]
     Route: 048
     Dates: start: 20110201

REACTIONS (1)
  - BONE PAIN [None]
